FAERS Safety Report 21384579 (Version 2)
Quarter: 2022Q4

REPORT INFORMATION
  Report Type: Spontaneous
  Country: US (occurrence: US)
  Receive Date: 20220928
  Receipt Date: 20221004
  Transmission Date: 20230113
  Serious: Yes (Death, Other)
  Sender: FDA-Public Use
  Company Number: US-JNJFOC-20220940561

PATIENT
  Age: 50 Year
  Sex: Female

DRUGS (17)
  1. PREZISTA [Suspect]
     Active Substance: DARUNAVIR ETHANOLATE
     Indication: HIV-2 infection
     Route: 048
     Dates: start: 20070809, end: 20111212
  2. EMTRIVA [Suspect]
     Active Substance: EMTRICITABINE
     Indication: HIV-2 infection
     Route: 065
     Dates: start: 20060627, end: 20120522
  3. EMTRIVA [Suspect]
     Active Substance: EMTRICITABINE
     Route: 065
     Dates: start: 20160909, end: 20170302
  4. VIREAD [Suspect]
     Active Substance: TENOFOVIR DISOPROXIL FUMARATE
     Indication: HIV-2 infection
     Route: 065
     Dates: start: 20060627, end: 20170302
  5. VIREAD [Suspect]
     Active Substance: TENOFOVIR DISOPROXIL FUMARATE
     Indication: Hepatitis B
  6. RITONAVIR [Suspect]
     Active Substance: RITONAVIR
     Indication: HIV-2 infection
     Route: 065
     Dates: start: 20070806, end: 20120522
  7. RITONAVIR [Suspect]
     Active Substance: RITONAVIR
     Route: 065
     Dates: start: 20120702, end: 201209
  8. DOLUTEGRAVIR [Suspect]
     Active Substance: DOLUTEGRAVIR
     Indication: HIV-2 infection
     Route: 065
     Dates: start: 20140408, end: 20170302
  9. ISENTRESS [Suspect]
     Active Substance: RALTEGRAVIR POTASSIUM
     Indication: HIV-2 infection
     Route: 065
     Dates: start: 20120522, end: 20120702
  10. ISENTRESS [Suspect]
     Active Substance: RALTEGRAVIR POTASSIUM
     Route: 065
     Dates: start: 201209, end: 20140408
  11. KIVEXA [Suspect]
     Active Substance: ABACAVIR SULFATE\LAMIVUDINE
     Indication: HIV-2 infection
     Route: 065
     Dates: start: 20120522, end: 20160909
  12. INVIRASE [Suspect]
     Active Substance: SAQUINAVIR MESYLATE
     Indication: HIV-2 infection
     Route: 065
     Dates: start: 20120702, end: 201209
  13. ESOMEPRAZOLE [Concomitant]
     Active Substance: ESOMEPRAZOLE
  14. COTRIMOXAZOLE [Concomitant]
     Active Substance: SULFAMETHOXAZOLE\TRIMETHOPRIM
  15. ZOLPIDEM [Concomitant]
     Active Substance: ZOLPIDEM TARTRATE
  16. ATAZANAVIR [Concomitant]
     Active Substance: ATAZANAVIR
  17. TENOFOVIR [Concomitant]
     Active Substance: TENOFOVIR

REACTIONS (7)
  - Death [Fatal]
  - Hepatitis B DNA increased [Recovered/Resolved]
  - Genotype drug resistance test positive [Not Recovered/Not Resolved]
  - Drug ineffective [Not Recovered/Not Resolved]
  - Blood HIV RNA increased [Not Recovered/Not Resolved]
  - Dyspepsia [Unknown]
  - Pruritus [Unknown]

NARRATIVE: CASE EVENT DATE: 20111114
